FAERS Safety Report 12369519 (Version 1)
Quarter: 2016Q2

REPORT INFORMATION
  Report Type: Spontaneous
  Country: US (occurrence: None)
  Receive Date: 20160513
  Receipt Date: 20160513
  Transmission Date: 20160815
  Serious: Yes (Disabling)
  Sender: FDA-Public Use
  Company Number: None

PATIENT
  Age: 47 Year
  Sex: Male
  Weight: 74.84 kg

DRUGS (6)
  1. METRONIDAZOLE. [Concomitant]
     Active Substance: METRONIDAZOLE
  2. VORICONAZOLE. [Suspect]
     Active Substance: VORICONAZOLE
     Indication: INFECTION REACTIVATION
     Route: 048
     Dates: start: 20150301, end: 20160511
  3. HUMIRA [Suspect]
     Active Substance: ADALIMUMAB
     Indication: CROHN^S DISEASE
     Dosage: 1 INJECTION 1 PEN / 2 WEEKS GIVEN INTO/UNDER THE SKIN
     Route: 058
     Dates: start: 20150301, end: 20160511
  4. IRON [Concomitant]
     Active Substance: IRON
  5. VORICONAZOLE. [Suspect]
     Active Substance: VORICONAZOLE
     Indication: HISTOPLASMOSIS
     Route: 048
     Dates: start: 20150301, end: 20160511
  6. VITAMIN B12 [Concomitant]
     Active Substance: CYANOCOBALAMIN

REACTIONS (1)
  - Squamous cell carcinoma [None]

NARRATIVE: CASE EVENT DATE: 20160511
